FAERS Safety Report 6996670-4 (Version None)
Quarter: 2010Q3

REPORT INFORMATION
  Report Type: 
  Country: None (occurrence: None)
  Receive Date: 20100918
  Receipt Date: 20090618
  Transmission Date: 20110219
  Serious: No
  Sender: FDA-Public Use
  Company Number: US-WYE-H09898909

PATIENT
  Sex: Female

DRUGS (1)
  1. EFFEXOR [Suspect]
     Dosage: UNKNOWN
     Dates: start: 20090101

REACTIONS (5)
  - ASTHENIA [None]
  - EAR PAIN [None]
  - FEELING ABNORMAL [None]
  - NAUSEA [None]
  - UNEVALUABLE EVENT [None]
